FAERS Safety Report 9443602 (Version 1)
Quarter: 2013Q3

REPORT INFORMATION
  Report Type: Spontaneous
  Country: JP (occurrence: JP)
  Receive Date: 20130802
  Receipt Date: 20130802
  Transmission Date: 20140515
  Serious: Yes (Disabling)
  Sender: FDA-Public Use
  Company Number: JP-ALSI-201300201

PATIENT
  Sex: 0
  Weight: 1.16 kg

DRUGS (6)
  1. OXYGEN [Suspect]
     Indication: BRONCHOPULMONARY DYSPLASIA
  2. ERYTHROPOIETIN [Suspect]
  3. ALBUMIN [Concomitant]
  4. FRESH FROZEN PLASMA [Concomitant]
  5. DOPAMINE [Concomitant]
  6. DOBUTAMINE [Concomitant]

REACTIONS (2)
  - Retinopathy of prematurity [None]
  - Intraventricular haemorrhage [None]
